FAERS Safety Report 23711050 (Version 4)
Quarter: 2024Q2

REPORT INFORMATION
  Report Type: Report from Study
  Country: US (occurrence: US)
  Receive Date: 20240405
  Receipt Date: 20240609
  Transmission Date: 20240716
  Serious: No
  Sender: FDA-Public Use
  Company Number: US-AstraZeneca-CH-00597728A

PATIENT
  Sex: Female

DRUGS (1)
  1. STRENSIQ [Suspect]
     Active Substance: ASFOTASE ALFA
     Indication: Hypophosphatasia
     Dosage: UNK
     Route: 065

REACTIONS (7)
  - Asthenia [Not Recovered/Not Resolved]
  - Musculoskeletal stiffness [Recovering/Resolving]
  - Injection site cellulitis [Recovered/Resolved]
  - Visual impairment [Unknown]
  - Feeling abnormal [Not Recovered/Not Resolved]
  - Calcinosis [Unknown]
  - Injection site pain [Not Recovered/Not Resolved]
